FAERS Safety Report 20462304 (Version 2)
Quarter: 2022Q1

REPORT INFORMATION
  Report Type: Report from Study
  Country: CN (occurrence: CN)
  Receive Date: 20220211
  Receipt Date: 20220224
  Transmission Date: 20220423
  Serious: Yes (Hospitalization)
  Sender: FDA-Public Use
  Company Number: CN-PFIZER INC-202200215488

PATIENT
  Age: 63 Year
  Sex: Female

DRUGS (56)
  1. PACLITAXEL [Suspect]
     Active Substance: PACLITAXEL
     Indication: Triple negative breast cancer
     Dosage: 119 MG, WEEKLY
     Route: 042
     Dates: start: 20210917, end: 20210917
  2. PACLITAXEL [Suspect]
     Active Substance: PACLITAXEL
     Dosage: 119 MG, WEEKLY
     Route: 042
     Dates: start: 20210926, end: 20210926
  3. PACLITAXEL [Suspect]
     Active Substance: PACLITAXEL
     Dosage: 119 MG, WEEKLY
     Route: 042
     Dates: start: 20211004, end: 20211004
  4. PACLITAXEL [Suspect]
     Active Substance: PACLITAXEL
     Dosage: 119 MG, WEEKLY
     Route: 042
     Dates: start: 20211020, end: 20211020
  5. PACLITAXEL [Suspect]
     Active Substance: PACLITAXEL
     Dosage: 119 MG, WEEKLY
     Route: 042
     Dates: start: 20211027, end: 20211027
  6. PACLITAXEL [Suspect]
     Active Substance: PACLITAXEL
     Dosage: 119 MG, WEEKLY
     Route: 042
     Dates: start: 20211103, end: 20211103
  7. PACLITAXEL [Suspect]
     Active Substance: PACLITAXEL
     Dosage: 122.4 MG, WEEKLY
     Route: 042
     Dates: start: 20211117, end: 20211117
  8. PACLITAXEL [Suspect]
     Active Substance: PACLITAXEL
     Dosage: 120 MG, WEEKLY
     Route: 042
     Dates: start: 20211207, end: 20211207
  9. PACLITAXEL [Suspect]
     Active Substance: PACLITAXEL
     Dosage: 120 MG, WEEKLY
     Route: 042
     Dates: start: 20211214, end: 20211214
  10. PACLITAXEL [Suspect]
     Active Substance: PACLITAXEL
     Dosage: 120 MG, WEEKLY
     Route: 042
     Dates: start: 20211230, end: 20211230
  11. PACLITAXEL [Suspect]
     Active Substance: PACLITAXEL
     Dosage: 120 MG, WEEKLY
     Route: 042
     Dates: start: 20220107, end: 20220107
  12. PACLITAXEL [Suspect]
     Active Substance: PACLITAXEL
     Dosage: 120 MG, WEEKLY
     Route: 042
     Dates: start: 20220114, end: 20220114
  13. PACLITAXEL [Suspect]
     Active Substance: PACLITAXEL
     Dosage: 80 MG/M2, WEEKLY
     Route: 042
     Dates: start: 20220129
  14. INVESTIGATIONAL PRODUCT [Suspect]
     Active Substance: INVESTIGATIONAL PRODUCT
     Indication: Triple negative breast cancer
     Dosage: 400 MG, 2X/DAY
     Route: 048
     Dates: start: 20210918, end: 20210921
  15. INVESTIGATIONAL PRODUCT [Suspect]
     Active Substance: INVESTIGATIONAL PRODUCT
     Dosage: 400 MG, Q12H
     Route: 048
     Dates: start: 20211021, end: 20211024
  16. INVESTIGATIONAL PRODUCT [Suspect]
     Active Substance: INVESTIGATIONAL PRODUCT
     Dosage: 400 MG, Q12H
     Route: 048
     Dates: start: 20210927, end: 20210930
  17. INVESTIGATIONAL PRODUCT [Suspect]
     Active Substance: INVESTIGATIONAL PRODUCT
     Dosage: 400 MG, Q12H
     Route: 048
     Dates: start: 20211005, end: 20211008
  18. INVESTIGATIONAL PRODUCT [Suspect]
     Active Substance: INVESTIGATIONAL PRODUCT
     Dosage: 400 MG, Q12H
     Route: 048
     Dates: start: 20211028, end: 20211031
  19. INVESTIGATIONAL PRODUCT [Suspect]
     Active Substance: INVESTIGATIONAL PRODUCT
     Dosage: 400 MG, Q12H
     Route: 048
     Dates: start: 20211104, end: 20211107
  20. INVESTIGATIONAL PRODUCT [Suspect]
     Active Substance: INVESTIGATIONAL PRODUCT
     Dosage: 400 MG, Q12H
     Route: 048
     Dates: start: 20211118, end: 20211121
  21. INVESTIGATIONAL PRODUCT [Suspect]
     Active Substance: INVESTIGATIONAL PRODUCT
     Dosage: 400 MG, Q12H
     Route: 048
     Dates: start: 20211208, end: 20211211
  22. INVESTIGATIONAL PRODUCT [Suspect]
     Active Substance: INVESTIGATIONAL PRODUCT
     Dosage: 400 MG, Q12H
     Route: 048
     Dates: start: 20211215, end: 20211218
  23. INVESTIGATIONAL PRODUCT [Suspect]
     Active Substance: INVESTIGATIONAL PRODUCT
     Dosage: 400 MG, Q12H
     Route: 048
     Dates: start: 20211231, end: 20220103
  24. INVESTIGATIONAL PRODUCT [Suspect]
     Active Substance: INVESTIGATIONAL PRODUCT
     Dosage: 400 MG, Q12H
     Route: 048
     Dates: start: 20220108, end: 20220111
  25. INVESTIGATIONAL PRODUCT [Suspect]
     Active Substance: INVESTIGATIONAL PRODUCT
     Dosage: 400 MG, Q12H
     Route: 048
     Dates: start: 20220115, end: 20220118
  26. INVESTIGATIONAL PRODUCT [Suspect]
     Active Substance: INVESTIGATIONAL PRODUCT
     Dosage: 400 MG, Q12H
     Route: 048
     Dates: start: 20220130, end: 20220202
  27. DEXAMETHASONE SODIUM PHOSPHATE [Concomitant]
     Active Substance: DEXAMETHASONE SODIUM PHOSPHATE
     Indication: Chemotherapy
     Dosage: 20 MG
     Route: 042
     Dates: start: 20211230, end: 20211230
  28. DEXAMETHASONE SODIUM PHOSPHATE [Concomitant]
     Active Substance: DEXAMETHASONE SODIUM PHOSPHATE
     Dosage: 20 MG
     Route: 042
     Dates: start: 20220107, end: 20220107
  29. DEXAMETHASONE SODIUM PHOSPHATE [Concomitant]
     Active Substance: DEXAMETHASONE SODIUM PHOSPHATE
     Dosage: 20 MG
     Route: 042
     Dates: start: 20220114, end: 20220114
  30. DIPHENHYDRAMINE HYDROCHLORIDE [Concomitant]
     Active Substance: DIPHENHYDRAMINE HYDROCHLORIDE
     Indication: Chemotherapy
     Dosage: 50 MG
     Route: 030
     Dates: start: 20211230, end: 20211230
  31. DIPHENHYDRAMINE HYDROCHLORIDE [Concomitant]
     Active Substance: DIPHENHYDRAMINE HYDROCHLORIDE
     Dosage: 50 MG
     Route: 030
     Dates: start: 20220107, end: 20220107
  32. DIPHENHYDRAMINE HYDROCHLORIDE [Concomitant]
     Active Substance: DIPHENHYDRAMINE HYDROCHLORIDE
     Dosage: 50 MG
     Route: 030
     Dates: start: 20220114, end: 20220114
  33. IBANDRONATE SODIUM [Concomitant]
     Active Substance: IBANDRONATE SODIUM
     Indication: Protein total
     Dosage: 4.00 MG
     Route: 042
     Dates: start: 20211230, end: 20211230
  34. IBANDRONATE SODIUM [Concomitant]
     Active Substance: IBANDRONATE SODIUM
     Indication: Metastases to bone
  35. ROCALTROL [Concomitant]
     Active Substance: CALCITRIOL
     Indication: Metastases to bone
     Dosage: 25 MG, DAILY
     Route: 048
     Dates: start: 20211005
  36. CALCIUM CARBONATE\CHOLECALCIFEROL [Concomitant]
     Active Substance: CALCIUM CARBONATE\CHOLECALCIFEROL
     Indication: Metastases to bone
     Dosage: 600 MG, DAILY
     Route: 048
     Dates: start: 20210927
  37. DESLORATADINE [Concomitant]
     Active Substance: DESLORATADINE
     Indication: Maculopathy
     Dosage: 8.8 MG, DAILY
     Route: 048
     Dates: start: 20211208, end: 20220109
  38. DESLORATADINE [Concomitant]
     Active Substance: DESLORATADINE
     Indication: Rash papular
     Dosage: 8.8 MG, DAILY
     Route: 048
     Dates: start: 20220118, end: 20220126
  39. DESLORATADINE [Concomitant]
     Active Substance: DESLORATADINE
     Indication: Pemphigus
  40. DESONIDE [Concomitant]
     Active Substance: DESONIDE
     Indication: Maculopathy
     Dosage: 0.50 SUPPORT, 3X/DAY
     Route: 061
     Dates: start: 20211104, end: 20220203
  41. DESONIDE [Concomitant]
     Active Substance: DESONIDE
     Indication: Pemphigus
  42. PEGYLATED RECOMBINANT HUMAN GRANULOCYTE COLONY STIMULATING FACTOR [Concomitant]
     Indication: White blood cell count decreased
     Dosage: 200 UG/INHAL, DAILY
     Route: 058
     Dates: start: 20220113, end: 20220113
  43. PEGYLATED RECOMBINANT HUMAN GRANULOCYTE COLONY STIMULATING FACTOR [Concomitant]
     Dosage: 200 UG/INHAL, DAILY
     Route: 058
     Dates: start: 20220120, end: 20220120
  44. VITAMIN C [Concomitant]
     Active Substance: ASCORBIC ACID
     Indication: Stomatitis
     Dosage: 1.72 G, Q12H
     Route: 048
     Dates: start: 20211031
  45. VITAMIN C [Concomitant]
     Active Substance: ASCORBIC ACID
     Indication: Mouth ulceration
  46. RECOMBINANT HUMAN ERYTHROPOIETIN INJECTION (CHO CELL) [Concomitant]
     Indication: Anaemia
     Dosage: 10.00 KIU
     Route: 058
     Dates: start: 20211230, end: 20211230
  47. RECOMBINANT HUMAN ERYTHROPOIETIN INJECTION (CHO CELL) [Concomitant]
     Dosage: 10.00 KIU
     Route: 058
     Dates: start: 20220107, end: 20220107
  48. RECOMBINANT HUMAN ERYTHROPOIETIN INJECTION (CHO CELL) [Concomitant]
     Dosage: 10.00 KIU
     Route: 058
     Dates: start: 20220114, end: 20220114
  49. NIFEREX [IRON POLYSACCHARIDE COMPLEX] [Concomitant]
     Indication: Anaemia
     Dosage: 150 MG, DAILY
     Route: 048
     Dates: start: 20211104, end: 20220109
  50. GRANISETRON HYDROCHLORIDE [Concomitant]
     Active Substance: GRANISETRON HYDROCHLORIDE
     Indication: Chemotherapy
     Dosage: 3.00 MG
     Route: 042
     Dates: start: 20211230, end: 20211230
  51. GRANISETRON HYDROCHLORIDE [Concomitant]
     Active Substance: GRANISETRON HYDROCHLORIDE
     Dosage: 3.00 MG
     Route: 042
     Dates: start: 20220107, end: 20220107
  52. GRANISETRON HYDROCHLORIDE [Concomitant]
     Active Substance: GRANISETRON HYDROCHLORIDE
     Dosage: 3.00 MG
     Route: 042
     Dates: start: 20220114, end: 20220114
  53. LOPERAMIDE HYDROCHLORIDE [Concomitant]
     Active Substance: LOPERAMIDE HYDROCHLORIDE
     Indication: Diarrhoea
     Dosage: 2 MG, DAILY
     Route: 048
     Dates: start: 20220102, end: 20220103
  54. LOPERAMIDE HYDROCHLORIDE [Concomitant]
     Active Substance: LOPERAMIDE HYDROCHLORIDE
     Dosage: 2 MG, DAILY
     Route: 048
     Dates: start: 20220119, end: 20220120
  55. ALOE VERA LEAF [Concomitant]
     Active Substance: ALOE VERA LEAF
     Indication: Constipation
     Dosage: 0.43 G, 2X/DAY
     Route: 048
     Dates: start: 20220108, end: 20220109
  56. ALOE VERA LEAF [Concomitant]
     Active Substance: ALOE VERA LEAF
     Dosage: 0.43 G, 2X/DAY
     Route: 048
     Dates: start: 20220115, end: 20220116

REACTIONS (1)
  - Neutrophil count decreased [Recovered/Resolved]

NARRATIVE: CASE EVENT DATE: 20220120
